FAERS Safety Report 21114302 (Version 1)
Quarter: 2022Q3

REPORT INFORMATION
  Report Type: Other
  Country: CA (occurrence: CA)
  Receive Date: 20220721
  Receipt Date: 20220721
  Transmission Date: 20221027
  Serious: Yes (Other)
  Sender: FDA-Public Use
  Company Number: CA-TARO PHARMACEUTICALS USA INC.-2022TAR00927

PATIENT
  Age: 85 Year
  Sex: Female
  Weight: 59 kg

DRUGS (1)
  1. WARFARIN [Suspect]
     Active Substance: WARFARIN
     Indication: Atrial fibrillation
     Dosage: 3 MG, OD, 1 EVERY 1 DAYS
     Route: 048

REACTIONS (2)
  - Anaemia [Unknown]
  - Dyspnoea [Unknown]
